FAERS Safety Report 8980171 (Version 1)
Quarter: 2012Q4

REPORT INFORMATION
  Report Type: 
  Country: US (occurrence: US)
  Receive Date: 20121221
  Receipt Date: 20121221
  Transmission Date: 20130627
  Serious: Yes (Other)
  Sender: FDA-Public Use
  Company Number: US-JNJFOC-20111100385

PATIENT
  Age: 48 Year
  Sex: Male
  Weight: 106.6 kg

DRUGS (1)
  1. VISINE ORIGINAL REDNESS RELIEF [Suspect]
     Indication: EYE IRRITATION
     Dosage: couple of drops in each eye three separate times
     Route: 047
     Dates: start: 20111030, end: 20111031

REACTIONS (8)
  - Visual impairment [Not Recovered/Not Resolved]
  - Vision blurred [Not Recovered/Not Resolved]
  - Eye pain [Not Recovered/Not Resolved]
  - Eye inflammation [Not Recovered/Not Resolved]
  - Eye irritation [Not Recovered/Not Resolved]
  - Eye pruritus [Not Recovered/Not Resolved]
  - Lacrimation increased [Not Recovered/Not Resolved]
  - Impaired work ability [Unknown]
